FAERS Safety Report 8974684 (Version 1)
Quarter: 2012Q4

REPORT INFORMATION
  Report Type: Spontaneous
  Country: US (occurrence: None)
  Receive Date: 20121217
  Receipt Date: 20121217
  Transmission Date: 20130627
  Serious: Yes (Hospitalization)
  Sender: FDA-Public Use
  Company Number: None

PATIENT
  Age: 61 Year
  Sex: Male

DRUGS (5)
  1. PHENYTOIN [Suspect]
     Indication: SIEZURE
     Dosage: 100 MG TID po
     Route: 048
     Dates: start: 20120813, end: 20120915
  2. ATENOLOL [Concomitant]
  3. METFORMIN [Concomitant]
  4. LEVETIRACETAM [Concomitant]
  5. OMEPRAZOLE [Concomitant]

REACTIONS (4)
  - Drug level increased [None]
  - Lethargy [None]
  - Fatigue [None]
  - Urinary tract infection [None]
